FAERS Safety Report 5920370-2 (Version None)
Quarter: 2008Q4

REPORT INFORMATION
  Report Type: 
  Country: None (occurrence: None)
  Receive Date: 20081016
  Receipt Date: 20081009
  Transmission Date: 20090506
  Serious: Yes (Other)
  Sender: FDA-Public Use
  Company Number: PHEH2008US09050

PATIENT
  Sex: Female
  Weight: 90.8 kg

DRUGS (6)
  1. VIVELLE [Suspect]
     Dosage: UNK
     Route: 062
  2. ENBREL [Suspect]
     Indication: ANKYLOSING SPONDYLITIS
     Dosage: 50 MG, QW
     Route: 058
     Dates: start: 20050822
  3. CELECOXIB [Concomitant]
  4. LORATADINE [Concomitant]
  5. ERGOCALCIFEROL [Concomitant]
  6. PSEUDOEPHEDRINE HYDROCHLORIDE [Concomitant]

REACTIONS (2)
  - BENIGN BREAST NEOPLASM [None]
  - BREAST MASS [None]
